FAERS Safety Report 13081676 (Version 1)
Quarter: 2017Q1

REPORT INFORMATION
  Report Type: Spontaneous
  Country: FR (occurrence: FR)
  Receive Date: 20170103
  Receipt Date: 20170103
  Transmission Date: 20170428
  Serious: Yes (Death, Hospitalization)
  Sender: FDA-Public Use
  Company Number: FR-PFIZER INC-2016600183

PATIENT
  Age: 47 Year
  Sex: Male
  Weight: 87 kg

DRUGS (5)
  1. ETOPOSIDE TEVA [Suspect]
     Active Substance: ETOPOSIDE
     Indication: T-CELL LYMPHOMA
     Dosage: 210 MG, UNK FROM D1 TO D3
     Route: 042
     Dates: start: 20160912, end: 20161026
  2. PREDNISONE. [Concomitant]
     Active Substance: PREDNISONE
     Indication: T-CELL LYMPHOMA
     Dosage: UNK
  3. DOXORUBICINE TEVA [Suspect]
     Active Substance: DOXORUBICIN
     Indication: T-CELL LYMPHOMA
     Dosage: 100 MG, UNK ON D1
     Route: 042
     Dates: start: 20160912, end: 20161024
  4. VINCRISTINE SULFATE. [Suspect]
     Active Substance: VINCRISTINE SULFATE
     Indication: T-CELL LYMPHOMA
     Dosage: 2 MG, UNK ON D1
     Route: 042
     Dates: start: 20160912, end: 20161024
  5. ENDOXAN /00021101/ [Suspect]
     Active Substance: CYCLOPHOSPHAMIDE
     Indication: T-CELL LYMPHOMA
     Dosage: 1570 MG, UNK ON D1
     Route: 042
     Dates: start: 20160912, end: 20161024

REACTIONS (3)
  - Febrile bone marrow aplasia [Fatal]
  - Respiratory failure [Fatal]
  - Cardio-respiratory arrest [Fatal]

NARRATIVE: CASE EVENT DATE: 20161030
